FAERS Safety Report 21341118 (Version 2)
Quarter: 2022Q3

REPORT INFORMATION
  Report Type: Spontaneous
  Country: JP (occurrence: JP)
  Receive Date: 20220916
  Receipt Date: 20220928
  Transmission Date: 20221026
  Serious: Yes (Other)
  Sender: FDA-Public Use
  Company Number: JP-NOVARTISPH-NVSJ2022JP097396

PATIENT
  Age: 71 Year
  Sex: Male

DRUGS (1)
  1. COSENTYX [Suspect]
     Active Substance: SECUKINUMAB
     Indication: Psoriatic arthropathy
     Dosage: 300 MG
     Route: 058

REACTIONS (6)
  - Atlantoaxial subluxation [Recovering/Resolving]
  - Hypoaesthesia [Unknown]
  - Hemiparesis [Unknown]
  - Gait disturbance [Unknown]
  - Bladder disorder [Unknown]
  - Anorectal disorder [Unknown]
